FAERS Safety Report 21874888 (Version 1)
Quarter: 2023Q1

REPORT INFORMATION
  Report Type: Spontaneous
  Country: CA (occurrence: None)
  Receive Date: 20230117
  Receipt Date: 20230117
  Transmission Date: 20230417
  Serious: Yes (Other)
  Sender: FDA-Public Use
  Company Number: 2023A008895

PATIENT
  Sex: Male
  Weight: 98 kg

DRUGS (15)
  1. ROSUVASTATIN [Suspect]
     Active Substance: ROSUVASTATIN
     Route: 065
  2. AMLODIPINE BESYLATE [Suspect]
     Active Substance: AMLODIPINE BESYLATE
     Route: 065
  3. GLICLAZIDE [Suspect]
     Active Substance: GLICLAZIDE
     Route: 065
  4. IRBESARTAN [Suspect]
     Active Substance: IRBESARTAN
     Route: 065
  5. MAYZENT [Suspect]
     Active Substance: SIPONIMOD
     Indication: Secondary progressive multiple sclerosis
     Route: 048
  6. MAYZENT [Suspect]
     Active Substance: SIPONIMOD
     Indication: Secondary progressive multiple sclerosis
     Route: 065
  7. MAYZENT [Suspect]
     Active Substance: SIPONIMOD
     Indication: Secondary progressive multiple sclerosis
     Route: 065
  8. MAYZENT [Suspect]
     Active Substance: SIPONIMOD
     Indication: Secondary progressive multiple sclerosis
     Route: 065
  9. METFORMIN [Suspect]
     Active Substance: METFORMIN HYDROCHLORIDE
     Route: 065
  10. PERINDOPRIL [Suspect]
     Active Substance: PERINDOPRIL
  11. JARDIANCE [Concomitant]
     Active Substance: EMPAGLIFLOZIN
     Route: 065
  12. SEMAGLUTIDE [Concomitant]
     Active Substance: SEMAGLUTIDE
     Route: 058
  13. TRESIBA [Concomitant]
     Active Substance: INSULIN DEGLUDEC
     Route: 058
  14. INSULIN ASPART [Concomitant]
     Active Substance: INSULIN ASPART
     Route: 058
  15. CHONDROITIN SULFATE A/SODIUM BROMIDE/SODIUM SALICYLATE [Concomitant]
     Route: 058

REACTIONS (12)
  - Dysmetria [Not Recovered/Not Resolved]
  - Gait spastic [Not Recovered/Not Resolved]
  - Haematuria [Not Recovered/Not Resolved]
  - Hypokinesia [Not Recovered/Not Resolved]
  - Lymphopenia [Not Recovered/Not Resolved]
  - Muscle spasticity [Not Recovered/Not Resolved]
  - Muscular weakness [Not Recovered/Not Resolved]
  - Musculoskeletal discomfort [Not Recovered/Not Resolved]
  - Obstructive sleep apnoea syndrome [Not Recovered/Not Resolved]
  - Urinary incontinence [Not Recovered/Not Resolved]
  - Urine abnormality [Not Recovered/Not Resolved]
  - White blood cell count decreased [Not Recovered/Not Resolved]
